FAERS Safety Report 13834492 (Version 3)
Quarter: 2017Q4

REPORT INFORMATION
  Report Type: Spontaneous
  Country: IT (occurrence: IT)
  Receive Date: 20170804
  Receipt Date: 20171114
  Transmission Date: 20180320
  Serious: Yes (Other)
  Sender: FDA-Public Use
  Company Number: IT-CONCORDIA PHARMACEUTICALS INC.-E2B_00008292

PATIENT
  Age: 59 Year
  Sex: Male

DRUGS (5)
  1. PREDNISOLONE. [Suspect]
     Active Substance: PREDNISOLONE
     Indication: PEMPHIGOID
     Dosage: 25 MG/DAILY TAPERING DOSE
  2. CICLOSPORIN [Concomitant]
     Active Substance: CYCLOSPORINE
     Indication: PSORIASIS
  3. DAPSONE. [Concomitant]
     Active Substance: DAPSONE
     Indication: PEMPHIGOID
  4. EFALIZUMAB [Suspect]
     Active Substance: EFALIZUMAB
     Indication: PEMPHIGOID
     Dates: start: 2007, end: 2009
  5. ETANERCEPT [Suspect]
     Active Substance: ETANERCEPT
     Indication: PEMPHIGOID
     Dates: start: 2009, end: 2013

REACTIONS (1)
  - Papillary cystadenoma lymphomatosum [Unknown]

NARRATIVE: CASE EVENT DATE: 2013
